FAERS Safety Report 6927754-4 (Version None)
Quarter: 2010Q3

REPORT INFORMATION
  Report Type: 
  Country: None (occurrence: None)
  Receive Date: 20100812
  Receipt Date: 20100804
  Transmission Date: 20110219
  Serious: Yes (Hospitalization, Disabling)
  Sender: FDA-Public Use
  Company Number: 2010SP006325

PATIENT
  Age: 29 Year
  Sex: Female
  Weight: 53.978 kg

DRUGS (5)
  1. NUVARING [Suspect]
     Indication: CONTRACEPTION
     Dosage: VAG
     Route: 067
     Dates: start: 20070306, end: 20070704
  2. VALTREX [Concomitant]
  3. TRAMADOL HYDROCHLORIDE AND ACETAMINOPHEN [Concomitant]
  4. VENTOLIN [Concomitant]
  5. FIORICET [Concomitant]

REACTIONS (9)
  - ABDOMINAL ABSCESS [None]
  - BACTERIAL INFECTION [None]
  - CEREBRAL THROMBOSIS [None]
  - CONDITION AGGRAVATED [None]
  - LIPIDS ABNORMAL [None]
  - MENORRHAGIA [None]
  - MIGRAINE [None]
  - TRANSIENT ISCHAEMIC ATTACK [None]
  - VISUAL FIELD DEFECT [None]
